FAERS Safety Report 16123444 (Version 1)
Quarter: 2019Q1

REPORT INFORMATION
  Report Type: Report from Study
  Country: ES (occurrence: ES)
  Receive Date: 20190327
  Receipt Date: 20190327
  Transmission Date: 20190418
  Serious: Yes (Hospitalization)
  Sender: FDA-Public Use
  Company Number: ES-MYLANLABS-2019M1026357

PATIENT
  Age: 85 Year
  Sex: Male

DRUGS (4)
  1. AMLODIPINE BESILATE/VALSARTAN [Suspect]
     Active Substance: AMLODIPINE BESYLATE\VALSARTAN
     Indication: HYPERTENSION
     Dosage: UNK UNK, QD,160/5MG CADA 24 HORAS
     Route: 048
     Dates: start: 20170627, end: 20170830
  2. TARDYFERON [Concomitant]
     Active Substance: FERROUS SULFATE
     Indication: ANAEMIA
     Dosage: UNK UNK, QD, 1 COMPRIMIDO CADA 24 HORAS
     Route: 048
     Dates: start: 20170627
  3. ESIDREX [Suspect]
     Active Substance: HYDROCHLOROTHIAZIDE
     Indication: HYPERTENSION
     Dosage: 12.5 MILLIGRAM, QD,1/2 COMPRIMIDO POR LA MA?ANA
     Route: 048
     Dates: start: 20091203, end: 20170830
  4. AMLODIPINE [Suspect]
     Active Substance: AMLODIPINE BESYLATE
     Indication: HYPERTENSION
     Dosage: 5 MILLIGRAM, QD, 5MG CADA 24 HORAS
     Route: 048
     Dates: start: 20141201, end: 20170830

REACTIONS (1)
  - Acute kidney injury [Not Recovered/Not Resolved]

NARRATIVE: CASE EVENT DATE: 20170830
